FAERS Safety Report 4590356-1 (Version None)
Quarter: 2005Q1

REPORT INFORMATION
  Report Type: 
  Country: None (occurrence: None)
  Receive Date: 20050217
  Receipt Date: 20050211
  Transmission Date: 20050727
  Serious: Yes (Other)
  Sender: FDA-Public Use
  Company Number: KII-2005-0015132

PATIENT
  Age: 51 Year
  Sex: Male

DRUGS (4)
  1. OXYCONTIN [Suspect]
  2. ACETAMINOPHEN AND HYDROCODONE BITARTRATE [Suspect]
  3. AMITRIPTYLINE HCL [Suspect]
  4. ANTIBIOTICS () [Suspect]

REACTIONS (8)
  - ACCIDENTAL EXPOSURE [None]
  - BLOOD GLUCOSE DECREASED [None]
  - BLOOD POTASSIUM DECREASED [None]
  - BLOOD SODIUM DECREASED [None]
  - BODY TEMPERATURE DECREASED [None]
  - LOSS OF CONSCIOUSNESS [None]
  - MIOSIS [None]
  - MULTIPLE DRUG OVERDOSE [None]
